FAERS Safety Report 6837624-8 (Version None)
Quarter: 2010Q3

REPORT INFORMATION
  Report Type: 
  Country: None (occurrence: None)
  Receive Date: 20100713
  Receipt Date: 20070519
  Transmission Date: 20110219
  Serious: No
  Sender: FDA-Public Use
  Company Number: US-PFIZER INC-2007040353

PATIENT
  Sex: Female
  Weight: 48.636 kg

DRUGS (3)
  1. CHANTIX [Suspect]
     Indication: SMOKING CESSATION THERAPY
     Dates: start: 20070421
  2. COMBIPATCH [Concomitant]
     Dates: start: 20050101
  3. CALCITONIN [Concomitant]
     Dates: start: 20050101

REACTIONS (1)
  - INSOMNIA [None]
